FAERS Safety Report 7624487-6 (Version None)
Quarter: 2011Q3

REPORT INFORMATION
  Report Type: 
  Country: None (occurrence: None)
  Receive Date: 20110720
  Receipt Date: 20110707
  Transmission Date: 20111222
  Serious: Yes (Hospitalization, Other)
  Sender: FDA-Public Use
  Company Number: US-BAYER-2011-014326

PATIENT
  Age: 52 Year
  Sex: Female
  Weight: 76.64 kg

DRUGS (6)
  1. ADDERALL XR 10 [Concomitant]
     Dosage: 30 MG, QD
     Route: 048
     Dates: start: 20100101
  2. CLOTRIMAZOLE [Concomitant]
  3. SYNTHROID [Concomitant]
     Indication: HYPOTHYROIDISM
     Dosage: 112 MCG/24HR, QD
     Route: 048
     Dates: start: 20000101
  4. MOTRIN [Concomitant]
  5. YAZ [Suspect]
     Indication: PRODUCT USED FOR UNKNOWN INDICATION
     Dosage: UNK
     Dates: start: 20080801, end: 20080901
  6. LISINOPRIL [Concomitant]
     Indication: HYPERTENSION
     Dosage: 10 MG, QD
     Route: 048
     Dates: start: 20000101

REACTIONS (3)
  - DEEP VEIN THROMBOSIS [None]
  - GALLBLADDER DISORDER [None]
  - PAIN [None]
